FAERS Safety Report 9994385 (Version 1)
Quarter: 2014Q1

REPORT INFORMATION
  Report Type: Spontaneous
  Country: CA (occurrence: CA)
  Receive Date: 20140311
  Receipt Date: 20140311
  Transmission Date: 20141002
  Serious: Yes (Disabling)
  Sender: FDA-Public Use
  Company Number: CA-009507513-1403CAN001810

PATIENT
  Age: 63 Year
  Sex: Female

DRUGS (2)
  1. PEGETRON [Suspect]
     Indication: HEPATITIS C
     Dosage: STRENGTH: 0.5ML/200MG, DOSE: 150 MCG/1200MG
     Route: 065
     Dates: start: 20140118
  2. VICTRELIS TRIPLE [Suspect]
     Indication: HEPATITIS C
     Dosage: STRENGTH: 0.5ML/200MG/200MG, DAILY DOSE: 150MCG/1200MG/2400MG
     Route: 048
     Dates: start: 20140118

REACTIONS (6)
  - Walking disability [Unknown]
  - Nausea [Unknown]
  - Migraine [Unknown]
  - Influenza like illness [Unknown]
  - Impaired driving ability [Unknown]
  - Overdose [Unknown]
